FAERS Safety Report 13027889 (Version 1)
Quarter: 2016Q4

REPORT INFORMATION
  Report Type: Spontaneous
  Country: CN (occurrence: CN)
  Receive Date: 20161214
  Receipt Date: 20161214
  Transmission Date: 20170207
  Serious: Yes (Hospitalization, Other)
  Sender: FDA-Public Use
  Company Number: CN-PFIZER INC-2016573684

PATIENT
  Age: 62 Year
  Sex: Female
  Weight: 60 kg

DRUGS (8)
  1. BAYASPIRIN [Concomitant]
     Active Substance: ASPIRIN
     Indication: CORONARY ARTERY DISEASE
     Dosage: 100 MG, 1X/DAY
     Route: 048
     Dates: start: 19620101, end: 20161010
  2. AROMASIN [Suspect]
     Active Substance: EXEMESTANE
     Indication: BREAST CANCER STAGE III
     Dosage: 25 MG, 1X/DAY
     Route: 048
     Dates: start: 20160815, end: 20161009
  3. DIGOXIN. [Concomitant]
     Active Substance: DIGOXIN
     Indication: CORONARY ARTERY DISEASE
     Dosage: 0.125 MG, 1X/DAY
     Route: 048
     Dates: start: 19620101, end: 20161010
  4. GLIPIZIDE. [Concomitant]
     Active Substance: GLIPIZIDE
     Indication: DIABETES MELLITUS
     Dosage: 5 MG, 1X/DAY
     Route: 048
     Dates: start: 19620101, end: 20161010
  5. CHIDAMIDE [Suspect]
     Active Substance: TUCIDINOSTAT
     Indication: BREAST CANCER STAGE III
     Dosage: 30 MG, 2X/DAY
     Route: 048
     Dates: start: 20160815, end: 20161006
  6. FUROSEMIDE. [Concomitant]
     Active Substance: FUROSEMIDE
     Indication: PLEURAL EFFUSION
     Dosage: 20 MG, 1X/DAY
     Route: 048
     Dates: start: 19620101, end: 20161010
  7. SPIRONOLACTONE. [Concomitant]
     Active Substance: SPIRONOLACTONE
     Indication: PLEURAL EFFUSION
     Dosage: 40 MG, 1X/DAY
     Route: 048
     Dates: start: 19620101, end: 20161010
  8. METOPROLOL. [Concomitant]
     Active Substance: METOPROLOL
     Indication: CORONARY ARTERY DISEASE
     Dosage: 12.5 MG, 1X/DAY
     Route: 048
     Dates: start: 19620101, end: 20161010

REACTIONS (1)
  - Venous thrombosis limb [Not Recovered/Not Resolved]

NARRATIVE: CASE EVENT DATE: 20160925
